FAERS Safety Report 4992566-8 (Version None)
Quarter: 2006Q1

REPORT INFORMATION
  Report Type: 
  Country: None (occurrence: None)
  Receive Date: 20060315
  Receipt Date: 20051005
  Transmission Date: 20060701
  Serious: Yes (Other)
  Sender: FDA-Public Use
  Company Number: USA0510110061

PATIENT
  Sex: Male

DRUGS (1)
  1. GEMZAR [Suspect]
     Indication: PANCREATIC CARCINOMA
     Dosage: 1600 MG, WEEKLY (1/W), INTRAVENOUS
     Route: 042
     Dates: start: 20030101

REACTIONS (2)
  - DYSPNOEA [None]
  - NEOPLASM MALIGNANT [None]
